FAERS Safety Report 21812099 (Version 1)
Quarter: 2022Q4

REPORT INFORMATION
  Report Type: Spontaneous
  Country: US (occurrence: None)
  Receive Date: 20221230
  Receipt Date: 20221230
  Transmission Date: 20230113
  Serious: Yes (Disabling)
  Sender: FDA-Public Use
  Company Number: None

PATIENT
  Age: 25 Year
  Sex: Female
  Weight: 51.75 kg

DRUGS (1)
  1. MIRTAZAPINE [Suspect]
     Active Substance: MIRTAZAPINE
     Indication: Anxiety
     Dates: start: 20211210, end: 20221213

REACTIONS (12)
  - Drug withdrawal syndrome [None]
  - Nausea [None]
  - Vomiting [None]
  - Food allergy [None]
  - Insomnia [None]
  - Abdominal pain upper [None]
  - Muscle spasms [None]
  - Tremor [None]
  - Hyperhidrosis [None]
  - Asthenia [None]
  - Decreased appetite [None]
  - Weight decreased [None]

NARRATIVE: CASE EVENT DATE: 20221224
